FAERS Safety Report 21807387 (Version 2)
Quarter: 2023Q1

REPORT INFORMATION
  Report Type: Spontaneous
  Country: US (occurrence: US)
  Receive Date: 20230102
  Receipt Date: 20230109
  Transmission Date: 20230417
  Serious: No
  Sender: FDA-Public Use
  Company Number: US-PCCINC-2022-PEL-000766

PATIENT

DRUGS (1)
  1. GABLOFEN [Suspect]
     Active Substance: BACLOFEN
     Indication: Product used for unknown indication
     Dosage: 125.8 MICROGRAM/ DAY (5.2 MCG/HR)
     Route: 037

REACTIONS (1)
  - Drug ineffective [Recovered/Resolved]
